FAERS Safety Report 16282103 (Version 2)
Quarter: 2019Q4

REPORT INFORMATION
  Report Type: Spontaneous
  Country: CN (occurrence: CN)
  Receive Date: 20190507
  Receipt Date: 20191201
  Transmission Date: 20200122
  Serious: Yes (Other)
  Sender: FDA-Public Use
  Company Number: CN-ASTRAZENECA-2019SE68855

PATIENT
  Age: 52 Year
  Sex: Female
  Weight: 60 kg

DRUGS (12)
  1. BICUN [Concomitant]
     Active Substance: EDARAVONE
     Indication: CEREBROVASCULAR DISORDER
     Route: 042
     Dates: start: 20190402, end: 20190409
  2. MANNITOL. [Concomitant]
     Active Substance: MANNITOL
     Indication: CEREBROVASCULAR DISORDER
     Dates: start: 20190331, end: 20190401
  3. MANNITOL. [Concomitant]
     Active Substance: MANNITOL
     Indication: CEREBROVASCULAR DISORDER
     Dates: start: 20190402, end: 20190407
  4. ROSUVASTATIN CALCIUM. [Suspect]
     Active Substance: ROSUVASTATIN CALCIUM
     Indication: CEREBROVASCULAR DISORDER
     Route: 048
     Dates: start: 20190331, end: 20190401
  5. ROSUVASTATIN CALCIUM. [Suspect]
     Active Substance: ROSUVASTATIN CALCIUM
     Indication: CEREBROVASCULAR DISORDER
     Route: 048
     Dates: start: 20190401, end: 20190402
  6. BICUN [Concomitant]
     Active Substance: EDARAVONE
     Indication: CEREBROVASCULAR DISORDER
     Route: 042
     Dates: start: 20190331, end: 20190402
  7. TROXERUTIN [Concomitant]
     Active Substance: TROXERUTIN
     Indication: CEREBROVASCULAR DISORDER
  8. MANNITOL. [Concomitant]
     Active Substance: MANNITOL
     Indication: CEREBROVASCULAR DISORDER
     Dates: start: 20190401, end: 20190402
  9. ASPIRIN. [Concomitant]
     Active Substance: ASPIRIN
     Indication: CEREBROVASCULAR DISORDER
     Dates: start: 20190331, end: 20190401
  10. ROSUVASTATIN CALCIUM. [Suspect]
     Active Substance: ROSUVASTATIN CALCIUM
     Indication: CEREBROVASCULAR DISORDER
     Route: 048
     Dates: start: 20190403, end: 20190407
  11. MANNITOL. [Concomitant]
     Active Substance: MANNITOL
     Indication: CEREBROVASCULAR DISORDER
     Dates: start: 20190401, end: 20190401
  12. MANNITOL. [Concomitant]
     Active Substance: MANNITOL
     Indication: CEREBROVASCULAR DISORDER
     Dates: start: 20190402, end: 20190402

REACTIONS (3)
  - Liver injury [Recovering/Resolving]
  - Acute kidney injury [Recovering/Resolving]
  - Rhabdomyolysis [Recovering/Resolving]

NARRATIVE: CASE EVENT DATE: 20190405
